FAERS Safety Report 25810697 (Version 1)
Quarter: 2025Q3

REPORT INFORMATION
  Report Type: Spontaneous
  Country: US (occurrence: US)
  Receive Date: 20250917
  Receipt Date: 20250917
  Transmission Date: 20251021
  Serious: Yes (Hospitalization)
  Sender: MERCK SHARP & DOHME LLC
  Company Number: US-009507513-2329311

PATIENT
  Age: 72 Year
  Sex: Male

DRUGS (1)
  1. KEYTRUDA [Suspect]
     Active Substance: PEMBROLIZUMAB
     Indication: Throat cancer
     Dosage: INFUSION EVERY 3 WEEKS
     Route: 050
     Dates: start: 20250801

REACTIONS (6)
  - Dehydration [Unknown]
  - Alopecia [Unknown]
  - Pain [Unknown]
  - Skin ulcer [Recovered/Resolved]
  - Skin mass [Recovered/Resolved]
  - Hypotrichosis [Unknown]

NARRATIVE: CASE EVENT DATE: 20250801
